FAERS Safety Report 13687362 (Version 1)
Quarter: 2017Q2

REPORT INFORMATION
  Report Type: Report from Study
  Country: None (occurrence: US)
  Receive Date: 20170623
  Receipt Date: 20170623
  Transmission Date: 20170830
  Serious: Yes (Other)
  Sender: FDA-Public Use
  Company Number: US-ABBVIE-17P-163-2014344-00

PATIENT
  Sex: Female

DRUGS (1)
  1. LUPRON DEPOT [Suspect]
     Active Substance: LEUPROLIDE ACETATE
     Indication: ENDOMETRIOSIS
     Route: 030
     Dates: start: 2011, end: 2012

REACTIONS (4)
  - Cholecystectomy [Unknown]
  - Pelvic pain [Not Recovered/Not Resolved]
  - Abdominal pain [Recovered/Resolved]
  - Appendicectomy [Unknown]

NARRATIVE: CASE EVENT DATE: 2013
